FAERS Safety Report 6724716-7 (Version None)
Quarter: 2010Q2

REPORT INFORMATION
  Report Type: 
  Country: None (occurrence: None)
  Receive Date: 20100513
  Receipt Date: 20100512
  Transmission Date: 20101027
  Serious: Yes (Hospitalization)
  Sender: FDA-Public Use
  Company Number: DE-MERCK-1004DEU00038

PATIENT
  Age: 50 Year
  Sex: Male
  Weight: 88 kg

DRUGS (8)
  1. VYTORIN [Suspect]
     Indication: HYPERCHOLESTEROLAEMIA
     Route: 048
     Dates: start: 20100304, end: 20100404
  2. VYTORIN [Suspect]
     Indication: CORONARY ARTERY DISEASE
     Route: 048
     Dates: start: 20100304, end: 20100404
  3. ASPIRIN [Concomitant]
     Route: 065
  4. PLAVIX [Concomitant]
     Route: 048
  5. METOPROLOL SUCCINATE [Concomitant]
     Route: 048
  6. ISDN [Concomitant]
     Route: 048
  7. RAMIPRIL [Concomitant]
     Route: 048
  8. MADOPAR [Concomitant]
     Route: 048

REACTIONS (8)
  - ARTHRALGIA [None]
  - ARTHRITIS [None]
  - CONTUSION [None]
  - DYSPHAGIA [None]
  - JOINT SWELLING [None]
  - MUSCLE STRAIN [None]
  - MYALGIA [None]
  - SPINAL DISORDER [None]
